FAERS Safety Report 9260737 (Version 1)
Quarter: 2013Q2

REPORT INFORMATION
  Report Type: Report from Study
  Country: US (occurrence: US)
  Receive Date: 20130429
  Receipt Date: 20130429
  Transmission Date: 20140414
  Serious: No
  Sender: FDA-Public Use
  Company Number: US-009507513-1304USA008609

PATIENT
  Age: 38 Year
  Sex: Female
  Weight: 101.59 kg

DRUGS (1)
  1. IMPLANON [Suspect]
     Dosage: UNK
     Dates: start: 20100311, end: 20130416

REACTIONS (2)
  - Incorrect drug administration duration [Recovered/Resolved]
  - Medical device removal [Unknown]
